FAERS Safety Report 4550807-5 (Version None)
Quarter: 2005Q1

REPORT INFORMATION
  Report Type: 
  Country: None (occurrence: None)
  Receive Date: 20050112
  Receipt Date: 20041230
  Transmission Date: 20050727
  Serious: Yes (Hospitalization, Disabling)
  Sender: FDA-Public Use
  Company Number: SE-MERCK-0501SWE00006

PATIENT
  Age: 82 Year
  Sex: Female

DRUGS (6)
  1. VIOXX [Suspect]
     Indication: ARTHROPATHY
     Route: 048
     Dates: start: 20040828, end: 20040911
  2. WARFARIN SODIUM [Concomitant]
     Route: 065
  3. FUROSEMIDE [Concomitant]
     Route: 065
  4. SPIRONOLACTONE [Concomitant]
     Route: 065
  5. VASOTEC [Concomitant]
     Route: 065
  6. SOTALOL HYDROCHLORIDE [Concomitant]
     Route: 065

REACTIONS (6)
  - BLISTER [None]
  - IMPAIRED HEALING [None]
  - LEG AMPUTATION [None]
  - SKIN DISCOLOURATION [None]
  - SKIN ULCER [None]
  - WOUND SECRETION [None]
